FAERS Safety Report 18680132 (Version 3)
Quarter: 2021Q1

REPORT INFORMATION
  Report Type: Other
  Country: BR (occurrence: BR)
  Receive Date: 20201230
  Receipt Date: 20210121
  Transmission Date: 20210419
  Serious: Yes (Other)
  Sender: FDA-Public Use
  Company Number: BR-ROCHE-2740512

PATIENT
  Age: 49 Year
  Sex: Female

DRUGS (10)
  1. BILASTINE [Concomitant]
     Active Substance: BILASTINE
     Indication: CHRONIC SPONTANEOUS URTICARIA
     Route: 048
  2. DESLORATADINE. [Concomitant]
     Active Substance: DESLORATADINE
     Indication: HYPERSENSITIVITY
  3. XOLAIR [Suspect]
     Active Substance: OMALIZUMAB
     Indication: CHRONIC SPONTANEOUS URTICARIA
     Dosage: UNK (150/1.0 MG/ML)
     Route: 058
     Dates: start: 201708
  4. XOLAIR [Suspect]
     Active Substance: OMALIZUMAB
     Indication: URTICARIA
     Route: 058
  5. MONTELUKAST SODIUM. [Concomitant]
     Active Substance: MONTELUKAST SODIUM
     Indication: HYPERSENSITIVITY
  6. BILASTINE [Concomitant]
     Active Substance: BILASTINE
     Indication: HYPERSENSITIVITY
     Dosage: 20 MG, QD
     Route: 048
  7. DESLORATADINE. [Concomitant]
     Active Substance: DESLORATADINE
     Indication: CHRONIC SPONTANEOUS URTICARIA
     Route: 048
  8. SODIUM CROMOGLYCATE [Concomitant]
     Active Substance: CROMOLYN SODIUM
     Indication: CHRONIC SPONTANEOUS URTICARIA
     Route: 048
  9. MONTELUKAST SODIUM. [Concomitant]
     Active Substance: MONTELUKAST SODIUM
     Indication: CHRONIC SPONTANEOUS URTICARIA
     Route: 048
  10. SODIUM CROMOGLYCATE [Concomitant]
     Active Substance: CROMOLYN SODIUM
     Indication: HYPERSENSITIVITY

REACTIONS (18)
  - Skin burning sensation [Recovered/Resolved]
  - Swelling face [Recovering/Resolving]
  - Burning sensation [Recovered/Resolved]
  - Periorbital swelling [Unknown]
  - Viral infection [Unknown]
  - Pain [Unknown]
  - Erythema [Recovered/Resolved]
  - Abnormal sensation in eye [Unknown]
  - Swelling of eyelid [Unknown]
  - Pruritus [Unknown]
  - Dyspepsia [Recovered/Resolved]
  - Dark circles under eyes [Unknown]
  - Skin irritation [Unknown]
  - Malaise [Unknown]
  - Pyrexia [Unknown]
  - Face oedema [Recovered/Resolved]
  - Periorbital swelling [Unknown]
  - Eye disorder [Unknown]

NARRATIVE: CASE EVENT DATE: 20190510
